FAERS Safety Report 7979992-X (Version None)
Quarter: 2011Q4

REPORT INFORMATION
  Report Type: 
  Country: None (occurrence: None)
  Receive Date: 20111208
  Receipt Date: 20111129
  Transmission Date: 20120403
  Serious: Yes (Other)
  Sender: FDA-Public Use
  Company Number: 2009SP028257

PATIENT
  Age: 44 Year
  Sex: Male

DRUGS (1)
  1. TEMODAL [Suspect]
     Indication: ANAPLASTIC ASTROCYTOMA
     Dosage: 150 MG/M2;PO
     Route: 048
     Dates: start: 20090706

REACTIONS (3)
  - DYSARTHRIA [None]
  - APHASIA [None]
  - HEMIPLEGIA [None]
